FAERS Safety Report 6386893-X (Version None)
Quarter: 2009Q4

REPORT INFORMATION
  Report Type: 
  Country: None (occurrence: None)
  Receive Date: 20091002
  Receipt Date: 20090728
  Transmission Date: 20100525
  Serious: Yes (Other)
  Sender: FDA-Public Use
  Company Number: JP-PFIZER INC-2009264425

PATIENT
  Age: 83 Year

DRUGS (5)
  1. MIGLITOL [Suspect]
     Indication: DIABETES MELLITUS
     Dosage: 150MG DAILY
     Route: 048
     Dates: start: 20090526
  2. LANTUS [Concomitant]
     Dosage: UNK
     Route: 058
  3. ADALAT CC [Concomitant]
     Dosage: UNK
     Route: 048
  4. THYRADIN [Concomitant]
     Dosage: UNK
     Route: 048
  5. PRAVASTATIN SODIUM [Concomitant]
     Dosage: UNK
     Route: 048

REACTIONS (5)
  - ALANINE AMINOTRANSFERASE INCREASED [None]
  - ASPARTATE AMINOTRANSFERASE INCREASED [None]
  - BLOOD ALKALINE PHOSPHATASE INCREASED [None]
  - GAMMA-GLUTAMYLTRANSFERASE INCREASED [None]
  - HEPATIC FUNCTION ABNORMAL [None]
